FAERS Safety Report 6291471-7 (Version None)
Quarter: 2009Q3

REPORT INFORMATION
  Report Type: 
  Country: None (occurrence: None)
  Receive Date: 20090730
  Receipt Date: 20090722
  Transmission Date: 20100115
  Serious: Yes (Other)
  Sender: FDA-Public Use
  Company Number: JP-ASTRAZENECA-2009SE05645

PATIENT
  Age: 70 Year
  Sex: Male

DRUGS (2)
  1. ANAPEINE [Suspect]
     Indication: NERVE BLOCK
     Route: 053
  2. FENTANYL-100 [Concomitant]
     Route: 062

REACTIONS (1)
  - PHRENIC NERVE PARALYSIS [None]
